FAERS Safety Report 4393394-7 (Version None)
Quarter: 2004Q3

REPORT INFORMATION
  Report Type: 
  Country: None (occurrence: None)
  Receive Date: 20040707
  Receipt Date: 20040707
  Transmission Date: 20050211
  Serious: Yes (Hospitalization)
  Sender: FDA-Public Use
  Company Number: None

PATIENT
  Sex: Male

DRUGS (20)
  1. ENOXAPARIN SODIUM [Suspect]
     Indication: AORTIC VALVE REPLACEMENT
     Dosage: 90 MG BID SQ
     Route: 058
     Dates: start: 20040316, end: 20040329
  2. ENOXAPARIN SODIUM [Suspect]
     Indication: INCISIONAL DRAINAGE
     Dosage: 90 MG BID SQ
     Route: 058
     Dates: start: 20040316, end: 20040329
  3. ENOXAPARIN SODIUM [Suspect]
     Indication: SKIN ULCER
     Dosage: 90 MG BID SQ
     Route: 058
     Dates: start: 20040316, end: 20040329
  4. WARFARIN SODIUM [Suspect]
     Indication: AORTIC VALVE REPLACEMENT
     Dosage: 5 MG DAILY ORAL
     Route: 048
     Dates: start: 20040316, end: 20040329
  5. WARFARIN SODIUM [Suspect]
     Indication: INCISIONAL DRAINAGE
     Dosage: 5 MG DAILY ORAL
     Route: 048
     Dates: start: 20040316, end: 20040329
  6. WARFARIN SODIUM [Suspect]
     Indication: SKIN ULCER
     Dosage: 5 MG DAILY ORAL
     Route: 048
     Dates: start: 20040316, end: 20040329
  7. APAP TAB [Concomitant]
  8. ASPIRIN [Concomitant]
  9. CITALOPRAM [Concomitant]
  10. EPOGEN [Concomitant]
  11. FERROUS SULFATE TAB [Concomitant]
  12. FINASTERIDE [Concomitant]
  13. INSULIN [Concomitant]
  14. LOVASTATIN [Concomitant]
  15. METOPROLOL [Concomitant]
  16. OMEPRAZOLE [Concomitant]
  17. PIPERACILLIN/TAZOBACTAM [Concomitant]
  18. QUETIAPINE [Concomitant]
  19. TERAZOSIN HCL [Concomitant]
  20. VANCOMYCIN [Concomitant]

REACTIONS (2)
  - HAEMATURIA [None]
  - HAEMOGLOBIN DECREASED [None]
